APPROVED DRUG PRODUCT: CIPRO
Active Ingredient: CIPROFLOXACIN
Strength: 1200MG/120ML (10MG/ML) **Federal Register determination that product was not discontinued or withdrawn for safety or effectiveness reasons**
Dosage Form/Route: INJECTABLE;INJECTION
Application: N019847 | Product #003
Applicant: BAYER HEALTHCARE PHARMACEUTICALS INC
Approved: Dec 26, 1990 | RLD: No | RS: No | Type: DISCN